FAERS Safety Report 21000529 (Version 1)
Quarter: 2022Q2

REPORT INFORMATION
  Report Type: Report from Study
  Country: FR (occurrence: FR)
  Receive Date: 20220623
  Receipt Date: 20220623
  Transmission Date: 20220720
  Serious: Yes (Other)
  Sender: FDA-Public Use
  Company Number: FR-GILEAD-2022-0576000

PATIENT
  Sex: Female
  Weight: 84 kg

DRUGS (7)
  1. SACITUZUMAB GOVITECAN [Suspect]
     Active Substance: SACITUZUMAB GOVITECAN
     Indication: Triple negative breast cancer
     Dosage: 10 MG/KG
     Route: 065
     Dates: start: 20211123, end: 20211130
  2. SACITUZUMAB GOVITECAN [Suspect]
     Active Substance: SACITUZUMAB GOVITECAN
     Dosage: DAY 1 = 10 MG/KG, DAY 8 = 0 MG/KG
     Route: 065
     Dates: start: 20211130, end: 20211207
  3. SACITUZUMAB GOVITECAN [Suspect]
     Active Substance: SACITUZUMAB GOVITECAN
     Dosage: C2DAY 1 = 10 MG/KG, DAY 8 = 0 MG/KG
     Route: 065
     Dates: start: 20211220, end: 20211227
  4. SACITUZUMAB GOVITECAN [Suspect]
     Active Substance: SACITUZUMAB GOVITECAN
     Dosage: 7.5 UNK DAY1= 7.5 MG/KG DAY8= 7 MG/KG
     Route: 065
     Dates: start: 20220125, end: 20220201
  5. SACITUZUMAB GOVITECAN [Suspect]
     Active Substance: SACITUZUMAB GOVITECAN
     Dosage: 7.5 UNK DAY1= 7.5 MG/KG DAY8= 7 MG/KG
     Route: 065
     Dates: start: 20220214, end: 20220221
  6. SACITUZUMAB GOVITECAN [Suspect]
     Active Substance: SACITUZUMAB GOVITECAN
     Dosage: C5 DAY1= 6.74 MG/KG
     Route: 065
     Dates: start: 20220307, end: 20220314
  7. HALAVEN [Concomitant]
     Active Substance: ERIBULIN MESYLATE

REACTIONS (8)
  - Cholestasis [Unknown]
  - Liver disorder [Recovered/Resolved]
  - COVID-19 [Recovered/Resolved]
  - General physical health deterioration [Unknown]
  - Diarrhoea [Unknown]
  - Off label use [Unknown]
  - Palmar-plantar erythrodysaesthesia syndrome [Unknown]
  - Asthenia [Unknown]

NARRATIVE: CASE EVENT DATE: 20211207
